FAERS Safety Report 8715863 (Version 2)
Quarter: 2012Q4

REPORT INFORMATION
  Report Type: 
  Country: JP (occurrence: JP)
  Receive Date: 20120809
  Receipt Date: 20120910
  Transmission Date: 20130627
  Serious: Yes (Death)
  Sender: FDA-Public Use
  Company Number: JP-JNJFOC-20120804174

PATIENT
  Age: 85 Year
  Sex: Female
  Weight: 51 kg

DRUGS (7)
  1. XARELTO [Suspect]
     Indication: PRODUCT USED FOR UNKNOWN INDICATION
     Route: 048
     Dates: start: 20120714, end: 20120728
  2. NORVASC [Concomitant]
     Indication: HYPERTENSION
     Route: 048
  3. ACECOL [Concomitant]
     Indication: HYPERTENSION
     Route: 048
     Dates: start: 20041202, end: 20120714
  4. BLOPRESS [Concomitant]
     Indication: HYPERTENSION
     Route: 048
     Dates: start: 20050804, end: 20120714
  5. NEXIUM [Concomitant]
     Indication: GASTROOESOPHAGEAL REFLUX DISEASE
     Route: 048
     Dates: start: 20111025, end: 20120714
  6. GASTROM [Concomitant]
     Indication: GASTRITIS
     Route: 048
     Dates: start: 20040909, end: 20120714
  7. POLAPREZINC [Concomitant]
     Indication: GASTRITIS
     Route: 048
     Dates: start: 20120714, end: 20120714

REACTIONS (1)
  - Heat illness [Fatal]
